FAERS Safety Report 22145209 (Version 1)
Quarter: 2023Q1

REPORT INFORMATION
  Report Type: Spontaneous
  Country: US (occurrence: US)
  Receive Date: 20230328
  Receipt Date: 20230328
  Transmission Date: 20230418
  Serious: No
  Sender: FDA-Public Use
  Company Number: US-AMGEN-USASP2023051067

PATIENT
  Age: 79 Year

DRUGS (3)
  1. RIABNI [Suspect]
     Active Substance: RITUXIMAB-ARRX
     Indication: Product used for unknown indication
     Dosage: 600 MILLIGRAM
     Route: 065
  2. RIABNI [Suspect]
     Active Substance: RITUXIMAB-ARRX
     Dosage: UNK
     Route: 065
  3. RIABNI [Suspect]
     Active Substance: RITUXIMAB-ARRX
     Dosage: UNK
     Route: 065

REACTIONS (3)
  - Productive cough [Unknown]
  - Chills [Unknown]
  - Vomiting [Unknown]

NARRATIVE: CASE EVENT DATE: 20230202
